FAERS Safety Report 8492866-3 (Version None)
Quarter: 2012Q3

REPORT INFORMATION
  Report Type: 
  Country: None (occurrence: None)
  Receive Date: 20120706
  Receipt Date: 20120704
  Transmission Date: 20120928
  Serious: Yes (Hospitalization, Other)
  Sender: FDA-Public Use
  Company Number: AU-JNJFOC-20120702246

PATIENT
  Age: 65 Year
  Sex: Male

DRUGS (1)
  1. SIMPONI [Suspect]
     Indication: ANKYLOSING SPONDYLITIS
     Route: 058

REACTIONS (1)
  - MULTIPLE MYELOMA [None]
